FAERS Safety Report 10476742 (Version 3)
Quarter: 2016Q3

REPORT INFORMATION
  Report Type: Spontaneous
  Country: US (occurrence: US)
  Receive Date: 20140925
  Receipt Date: 20160831
  Transmission Date: 20161109
  Serious: Yes (Death, Hospitalization, Other)
  Sender: FDA-Public Use
  Company Number: US-ELI_LILLY_AND_COMPANY-US201409006837

PATIENT
  Age: 78 Year
  Sex: Male

DRUGS (1)
  1. AXIRON [Suspect]
     Active Substance: TESTOSTERONE
     Indication: BLOOD TESTOSTERONE DECREASED
     Dosage: UNK, UNKNOWN
     Route: 065
     Dates: start: 20130226, end: 20130711

REACTIONS (7)
  - Myocardial infarction [Fatal]
  - Mental status changes [Unknown]
  - Pneumonia [Unknown]
  - Pulmonary embolism [Fatal]
  - Hepatocellular carcinoma [Fatal]
  - Acute kidney injury [Unknown]
  - Hepatic cancer metastatic [Unknown]

NARRATIVE: CASE EVENT DATE: 20130917
